FAERS Safety Report 24674874 (Version 1)
Quarter: 2024Q4

REPORT INFORMATION
  Report Type: Spontaneous
  Country: IT (occurrence: IT)
  Receive Date: 20241128
  Receipt Date: 20241128
  Transmission Date: 20250115
  Serious: Yes (Hospitalization, Other)
  Sender: TEVA
  Company Number: IT-TEVA-VS-3268112

PATIENT
  Age: 23 Year
  Sex: Female

DRUGS (6)
  1. ETOPOSIDE [Suspect]
     Active Substance: ETOPOSIDE
     Indication: Primary mediastinal large B-cell lymphoma stage IV
     Dosage: PART OF DA-EPOCH-R REGIMEN
     Route: 065
     Dates: start: 201909, end: 2019
  2. RITUXIMAB [Suspect]
     Active Substance: RITUXIMAB
     Indication: Primary mediastinal large B-cell lymphoma stage IV
     Dosage: PART OF DA-EPOCH-R REGIMEN
     Route: 065
     Dates: start: 201909, end: 2019
  3. PREDNISONE [Suspect]
     Active Substance: PREDNISONE
     Indication: Primary mediastinal large B-cell lymphoma stage IV
     Dosage: PART OF DA-EPOCH-R REGIMEN
     Route: 065
     Dates: start: 201909, end: 2019
  4. DOXORUBICIN [Suspect]
     Active Substance: DOXORUBICIN
     Indication: Primary mediastinal large B-cell lymphoma stage IV
     Dosage: PART OF DA-EPOCH-R REGIMEN
     Route: 065
     Dates: start: 201909, end: 2019
  5. CYCLOPHOSPHAMIDE [Suspect]
     Active Substance: CYCLOPHOSPHAMIDE
     Indication: Primary mediastinal large B-cell lymphoma stage IV
     Dosage: PART OF DA-EPOCH-R REGIMEN
     Route: 065
     Dates: start: 201909, end: 2019
  6. VINCRISTINE [Suspect]
     Active Substance: VINCRISTINE
     Indication: Primary mediastinal large B-cell lymphoma stage IV
     Dosage: PART OF DA-EPOCH-R REGIMEN
     Route: 065
     Dates: start: 201909, end: 2019

REACTIONS (1)
  - Sinus bradycardia [Not Recovered/Not Resolved]

NARRATIVE: CASE EVENT DATE: 20191023
